FAERS Safety Report 9073428 (Version 1)
Quarter: 2013Q1

REPORT INFORMATION
  Report Type: Spontaneous
  Country: US (occurrence: US)
  Receive Date: 20130216
  Receipt Date: 20130216
  Transmission Date: 20140127
  Serious: No
  Sender: FDA-Public Use
  Company Number: US-009507513-1302USA004013

PATIENT
  Sex: Female

DRUGS (1)
  1. NEXPLANON [Suspect]
     Dosage: 1 DF, UNK
     Dates: start: 20121219, end: 20130130

REACTIONS (3)
  - Menorrhagia [Recovered/Resolved]
  - Rash [Recovered/Resolved]
  - Menorrhagia [Unknown]
